FAERS Safety Report 5134897-7 (Version None)
Quarter: 2006Q4

REPORT INFORMATION
  Report Type: 
  Country: None (occurrence: None)
  Receive Date: 20061019
  Receipt Date: 20061003
  Transmission Date: 20070319
  Serious: Yes (Other)
  Sender: FDA-Public Use
  Company Number: US200605000446

PATIENT
  Age: 70 Year
  Sex: Female
  Weight: 94.3 kg

DRUGS (7)
  1. FORTEO [Suspect]
     Indication: OSTEOPOROSIS
     Dosage: 20  UG
     Dates: start: 20051106
  2. FORTEO PEN (250MCG/ML) (FORTEO PEN 250MCG/ML) PEN,DISPOSABLE [Concomitant]
  3. ACETAMINOPHEN [Concomitant]
  4. ASPIRIN [Concomitant]
  5. CAFFEINE (CAFFEINE) [Concomitant]
  6. CALCIUM (CALCIUM) [Concomitant]
  7. OMEGA 3 (FISH OIL) [Concomitant]

REACTIONS (9)
  - BLADDER CANCER [None]
  - BONE DENSITY DECREASED [None]
  - DRUG INEFFECTIVE [None]
  - HAIR COLOUR CHANGES [None]
  - HAIR GROWTH ABNORMAL [None]
  - MUSCLE SPASMS [None]
  - PHARMACEUTICAL PRODUCT COMPLAINT [None]
  - URINARY TRACT INFECTION [None]
  - WEIGHT INCREASED [None]
